FAERS Safety Report 7436444 (Version 2)
Quarter: 2014Q2

REPORT INFORMATION
  Report Type: Report from Study
  Country: JP (occurrence: JP)
  Receive Date: 20100625
  Receipt Date: 20140604
  Transmission Date: 20141212
  Serious: Yes (Hospitalization, Other)
  Sender: FDA-Public Use
  Company Number: PHHO2009JP10206

PATIENT
  Age: 51 Year
  Sex: Male
  Weight: 59 kg

DRUGS (14)
  1. PLACEBO [Suspect]
     Indication: PANCREATIC NEUROENDOCRINE TUMOUR
     Dosage: PLACEBO
     Route: 048
     Dates: start: 20080613, end: 20080818
  2. RAD 666 / RAD 001A [Suspect]
     Indication: PANCREATIC NEUROENDOCRINE TUMOUR
     Dosage: 10 MG DAILY
     Route: 048
     Dates: start: 20080821, end: 20080925
  3. RAD 666 / RAD 001A [Suspect]
     Dosage: 10 MG DAILY
     Route: 048
     Dates: start: 20081006, end: 20081225
  4. RAD 666 / RAD 001A [Suspect]
     Dosage: 10 MG DAILY
     Route: 048
     Dates: start: 20090108, end: 20090805
  5. FOIPAN [Concomitant]
     Indication: PANCREATIC DISORDER
  6. SEVEN EP [Concomitant]
     Indication: PANCREATIC DISORDER
  7. NAUZELIN [Concomitant]
     Indication: ABDOMINAL DISTENSION
  8. AMARYL [Concomitant]
     Indication: DIABETES MELLITUS
  9. MELBIN [Concomitant]
     Indication: DIABETES MELLITUS
  10. MAGLAX [Concomitant]
     Indication: CONSTIPATION
  11. ALLEGRA [Concomitant]
     Indication: RASH
  12. MIGLITOL [Concomitant]
     Indication: DIABETES MELLITUS
  13. PARIET [Concomitant]
     Indication: GASTROOESOPHAGEAL REFLUX DISEASE
  14. LANTUS [Concomitant]
     Indication: DIABETES MELLITUS

REACTIONS (13)
  - Pulmonary tuberculosis [Recovered/Resolved]
  - Pyrexia [Recovered/Resolved]
  - Cough [Recovered/Resolved]
  - Malaise [Recovered/Resolved]
  - Malignant neoplasm progression [Unknown]
  - Metastases to liver [Unknown]
  - Gastrointestinal haemorrhage [Unknown]
  - Metastases to stomach [Unknown]
  - Bone marrow failure [Unknown]
  - Localised oedema [Unknown]
  - Venous thrombosis [Unknown]
  - Dysgeusia [Recovering/Resolving]
  - Proctalgia [Recovering/Resolving]
